FAERS Safety Report 23233071 (Version 2)
Quarter: 2024Q1

REPORT INFORMATION
  Report Type: Report from Study
  Country: GB (occurrence: GB)
  Receive Date: 20231128
  Receipt Date: 20240119
  Transmission Date: 20240409
  Serious: Yes (Hospitalization, Other)
  Sender: FDA-Public Use
  Company Number: GB-002147023-NVSC2023GB001787

PATIENT
  Sex: Male

DRUGS (2)
  1. HYRIMOZ [Suspect]
     Active Substance: ADALIMUMAB-ADAZ
     Dosage: 40 MG, Q2W
     Route: 058
     Dates: start: 20230103
  2. HYRIMOZ [Suspect]
     Active Substance: ADALIMUMAB-ADAZ
     Indication: Crohn^s disease
     Dosage: 40 MG, Q2W ((SANDOZ LTD) 2 PRE-FILLED DISPOSABLE INJECTION)
     Route: 058
     Dates: start: 20221025

REACTIONS (7)
  - Pneumothorax [Unknown]
  - Prostate cancer [Unknown]
  - Prostatic specific antigen increased [Unknown]
  - Product dose omission issue [Unknown]
  - Nasopharyngitis [Unknown]
  - Fatigue [Unknown]
  - Inappropriate schedule of product administration [Unknown]
